FAERS Safety Report 23141285 (Version 1)
Quarter: 2023Q4

REPORT INFORMATION
  Report Type: Spontaneous
  Country: US (occurrence: US)
  Receive Date: 20231103
  Receipt Date: 20231103
  Transmission Date: 20240109
  Serious: Yes (Other)
  Sender: FDA-Public Use
  Company Number: US-RECORDATI RARE DISEASE INC.-2023007562

PATIENT

DRUGS (1)
  1. PANHEMATIN [Suspect]
     Active Substance: HEMIN
     Indication: Porphyria acute
     Dosage: 350 MG PER DAY
     Route: 042
     Dates: start: 20231022

REACTIONS (2)
  - Phlebitis [Unknown]
  - Product preparation issue [Recovered/Resolved]

NARRATIVE: CASE EVENT DATE: 20231023
